FAERS Safety Report 6729224-5 (Version None)
Quarter: 2010Q2

REPORT INFORMATION
  Report Type: 
  Country: None (occurrence: None)
  Receive Date: 20100517
  Receipt Date: 20100427
  Transmission Date: 20101027
  Serious: No
  Sender: FDA-Public Use
  Company Number: US-ABBOTT-10P-163-0640953-00

PATIENT
  Sex: Male

DRUGS (2)
  1. SIMCOR [Suspect]
     Indication: BLOOD CHOLESTEROL INCREASED
     Dosage: 500/20MG AT BEDTIME
     Route: 048
     Dates: start: 20100301
  2. SIMCOR [Suspect]
     Dosage: 500/20MG TWO TAB AT BEDTIME
     Route: 048
     Dates: end: 20100423

REACTIONS (2)
  - FLUSHING [None]
  - PRURITUS GENERALISED [None]
